FAERS Safety Report 22526940 (Version 1)
Quarter: 2023Q2

REPORT INFORMATION
  Report Type: Spontaneous
  Country: US (occurrence: US)
  Receive Date: 20230606
  Receipt Date: 20230606
  Transmission Date: 20230721
  Serious: No
  Sender: FDA-Public Use
  Company Number: US-MAYNE PHARMA-2022MYN001284

PATIENT

DRUGS (1)
  1. LEXETTE [Suspect]
     Active Substance: HALOBETASOL PROPIONATE
     Indication: Psoriasis
     Route: 061

REACTIONS (2)
  - Burning sensation [Unknown]
  - Drug ineffective [Unknown]
